FAERS Safety Report 5531388-6 (Version None)
Quarter: 2007Q4

REPORT INFORMATION
  Report Type: 
  Country: None (occurrence: None)
  Receive Date: 20071203
  Receipt Date: 20071130
  Transmission Date: 20080405
  Serious: Yes (Other)
  Sender: FDA-Public Use
  Company Number: US-RB-008635-07

PATIENT
  Age: 36 Year
  Sex: Female

DRUGS (1)
  1. SUBOXONE [Suspect]
     Indication: DRUG DEPENDENCE
     Dosage: DOSE UNKNOWN
     Route: 065
     Dates: start: 20070801

REACTIONS (4)
  - ABORTION SPONTANEOUS [None]
  - ABORTION SPONTANEOUS INCOMPLETE [None]
  - DRUG EXPOSURE DURING PREGNANCY [None]
  - PREGNANCY [None]
